FAERS Safety Report 8376857-9 (Version None)
Quarter: 2012Q2

REPORT INFORMATION
  Report Type: 
  Country: None (occurrence: None)
  Receive Date: 20120522
  Receipt Date: 20120517
  Transmission Date: 20120825
  Serious: Yes (Other)
  Sender: FDA-Public Use
  Company Number: US-PFIZER INC-2012120668

PATIENT
  Age: 45 Year
  Sex: Female

DRUGS (3)
  1. XALKORI [Suspect]
     Dosage: ALTERNATELY 250 MG ONCE A DAY AND 250 MG TWICE A DAY
     Dates: start: 20120501
  2. XALKORI [Suspect]
     Indication: NON-SMALL CELL LUNG CANCER
     Dosage: 250 MG, 2X/DAY
     Dates: start: 20111101, end: 20120401
  3. XALKORI [Suspect]
     Indication: ADENOCARCINOMA
     Dosage: 250 MG, 1X/DAY
     Dates: start: 20120401, end: 20120501

REACTIONS (6)
  - VISION BLURRED [None]
  - VISUAL IMPAIRMENT [None]
  - LACRIMATION INCREASED [None]
  - CONJUNCTIVAL HAEMORRHAGE [None]
  - ASTHENIA [None]
  - SLUGGISHNESS [None]
